FAERS Safety Report 6310157-3 (Version None)
Quarter: 2009Q3

REPORT INFORMATION
  Report Type: 
  Country: None (occurrence: None)
  Receive Date: 20090814
  Receipt Date: 20090806
  Transmission Date: 20100115
  Serious: Yes (Hospitalization)
  Sender: FDA-Public Use
  Company Number: JP-BRISTOL-MYERS SQUIBB COMPANY-14689822

PATIENT
  Age: 69 Year
  Sex: Female
  Weight: 58 kg

DRUGS (7)
  1. ABILIFY [Suspect]
     Indication: SCHIZOAFFECTIVE DISORDER
     Dosage: ABILIFY TABS 6 MG
     Route: 048
     Dates: start: 20090616, end: 20090618
  2. RISPERDAL [Suspect]
     Indication: SCHIZOAFFECTIVE DISORDER
     Dosage: STRGTH:1MG TAB UNK-18JUN09(INTRPTD):BID 20-24JUN09:2MG,QD,5DY 25JUN09-ONG:3MG,QD
     Route: 048
     Dates: start: 20090612
  3. ROHYPNOL [Suspect]
     Indication: INSOMNIA
     Dosage: STRNGTH:1MG TAB STARTED BEFORE 12JUN09 UNK-16JUN09-QD 17JUN09(1D)-BID 18-19JUN09(2D)-QD
     Route: 048
     Dates: end: 20090619
  4. DEPAS [Suspect]
     Indication: INSOMNIA
     Dosage: STRGTH:0.5MG TAB STARTED BEFORE 12JUN09 UNK-16JUN09:QD 17JUN09:BID,1DAY 18JUN09-ONG:QD
     Route: 048
  5. AMOBAN [Suspect]
     Indication: INSOMNIA
     Dosage: STRGTH:7.5MG TAB   7.5MG/D-02-15JUN09,14DYS;  15MG/D-16JUN09(1D),17JUN09(1D),18-19JUN09(2D)
     Route: 048
     Dates: start: 20090602, end: 20090619
  6. MICARDIS [Concomitant]
     Dosage: FORM- TAB
  7. AMLODIPINE [Concomitant]
     Dosage: FORM- TAB

REACTIONS (5)
  - ACUTE RESPIRATORY FAILURE [None]
  - BLOOD CREATINE PHOSPHOKINASE INCREASED [None]
  - HEPATIC FUNCTION ABNORMAL [None]
  - MYOGLOBINURIA [None]
  - RENAL FAILURE ACUTE [None]
